FAERS Safety Report 11729796 (Version 2)
Quarter: 2015Q4

REPORT INFORMATION
  Report Type: Spontaneous
  Country: US (occurrence: US)
  Receive Date: 20151112
  Receipt Date: 20151201
  Transmission Date: 20160304
  Serious: Yes (Hospitalization)
  Sender: FDA-Public Use
  Company Number: US-BAYER-2015-461681

PATIENT
  Age: 75 Year
  Sex: Male

DRUGS (6)
  1. TOREM [Concomitant]
     Active Substance: TORSEMIDE
     Dosage: 5 MG, QD
     Route: 048
     Dates: start: 20150716
  2. FLUVASTATIN [Concomitant]
     Active Substance: FLUVASTATIN SODIUM
     Dosage: 40 MG, QD
     Route: 048
     Dates: start: 20150802
  3. BAYER LOW DOSE [Suspect]
     Active Substance: ASPIRIN
     Indication: CEREBROVASCULAR ACCIDENT
     Dosage: 100 MG, QD
     Route: 048
     Dates: start: 20150802
  4. MOXONIDIN [Concomitant]
     Active Substance: MOXONIDINE
     Dosage: .3 MG, BID
     Route: 048
     Dates: start: 20150326
  5. ACETYLCYSTEINE. [Concomitant]
     Active Substance: ACETYLCYSTEINE
     Dosage: 60 MG, QD
     Route: 048
     Dates: start: 2015
  6. RAMIPRIL. [Concomitant]
     Active Substance: RAMIPRIL
     Dosage: 5 MG, QD
     Route: 048
     Dates: start: 20150716

REACTIONS (4)
  - Product use issue [None]
  - Gastritis [Recovered/Resolved]
  - Abdominal pain [Recovered/Resolved]
  - Hiatus hernia [None]

NARRATIVE: CASE EVENT DATE: 20150815
